FAERS Safety Report 6932738-6 (Version None)
Quarter: 2010Q3

REPORT INFORMATION
  Report Type: 
  Country: None (occurrence: None)
  Receive Date: 20100819
  Receipt Date: 20100811
  Transmission Date: 20110219
  Serious: Yes (Hospitalization)
  Sender: FDA-Public Use
  Company Number: CA-AMGEN-KDL429322

PATIENT
  Sex: Male
  Weight: 86.3 kg

DRUGS (2)
  1. ENBREL [Suspect]
     Indication: RHEUMATOID ARTHRITIS
     Dates: start: 20080618
  2. METHOTREXATE [Concomitant]
     Dates: start: 20040517, end: 20100318

REACTIONS (1)
  - CANDIDA PNEUMONIA [None]
